FAERS Safety Report 10263456 (Version 1)
Quarter: 2014Q2

REPORT INFORMATION
  Report Type: Spontaneous
  Country: GB (occurrence: GB)
  Receive Date: 20140626
  Receipt Date: 20140626
  Transmission Date: 20141212
  Serious: Yes (Other)
  Sender: FDA-Public Use
  Company Number: GB-MYLANLABS-2014S1014156

PATIENT
  Sex: 0

DRUGS (18)
  1. FLUCONAZOLE [Suspect]
     Indication: EVIDENCE BASED TREATMENT
  2. FLUCONAZOLE [Suspect]
     Indication: SYSTEMIC CANDIDA
  3. FLUCONAZOLE [Suspect]
     Indication: ASPERGILLUS INFECTION
  4. FLUCONAZOLE [Suspect]
     Indication: EVIDENCE BASED TREATMENT
     Dosage: }200MG
     Route: 048
  5. FLUCONAZOLE [Suspect]
     Indication: SYSTEMIC CANDIDA
     Dosage: }200MG
     Route: 048
  6. FLUCONAZOLE [Suspect]
     Indication: ASPERGILLUS INFECTION
     Dosage: }200MG
     Route: 048
  7. FLUCONAZOLE [Suspect]
     Indication: EVIDENCE BASED TREATMENT
  8. FLUCONAZOLE [Suspect]
     Indication: SYSTEMIC CANDIDA
  9. FLUCONAZOLE [Suspect]
     Indication: ASPERGILLUS INFECTION
  10. VFEND [Suspect]
     Indication: ASPERGILLUS INFECTION
  11. VFEND [Suspect]
     Indication: EVIDENCE BASED TREATMENT
  12. VFEND [Suspect]
     Indication: SYSTEMIC CANDIDA
  13. VFEND [Suspect]
     Indication: ASPERGILLUS INFECTION
     Dosage: UNK
  14. VFEND [Suspect]
     Indication: EVIDENCE BASED TREATMENT
     Dosage: UNK
  15. VFEND [Suspect]
     Indication: SYSTEMIC CANDIDA
     Dosage: UNK
  16. VFEND [Suspect]
     Indication: ASPERGILLUS INFECTION
  17. VFEND [Suspect]
     Indication: EVIDENCE BASED TREATMENT
  18. VFEND [Suspect]
     Indication: SYSTEMIC CANDIDA

REACTIONS (2)
  - Off label use [Unknown]
  - Neutropenia [Unknown]
